FAERS Safety Report 16504344 (Version 1)
Quarter: 2019Q3

REPORT INFORMATION
  Report Type: Spontaneous
  Country: US (occurrence: US)
  Receive Date: 20190701
  Receipt Date: 20190701
  Transmission Date: 20191004
  Serious: No
  Sender: FDA-Public Use
  Company Number: US-PFIZER INC-2019278055

PATIENT

DRUGS (1)
  1. SULFASALAZINE. [Suspect]
     Active Substance: SULFASALAZINE
     Indication: ULCER
     Dosage: UNK

REACTIONS (4)
  - Drug intolerance [Unknown]
  - Rash [Unknown]
  - Diarrhoea [Unknown]
  - Drug ineffective [Unknown]
